FAERS Safety Report 8392366 (Version 3)
Quarter: 2012Q4

REPORT INFORMATION
  Report Type: 
  Country: US (occurrence: US)
  Receive Date: 20120206
  Receipt Date: 20120913
  Transmission Date: 20130627
  Serious: Yes (Death, Hospitalization)
  Sender: FDA-Public Use
  Company Number: PHEH2011US011386

PATIENT
  Age: 51 None
  Sex: Female
  Weight: 133 kg

DRUGS (4)
  1. EXJADE [Suspect]
     Indication: SICKLE CELL ANAEMIA
     Dosage: 1250 mg daily
     Route: 048
     Dates: start: 20111006
  2. EXJADE [Suspect]
     Dosage: 750 mg, daily
     Route: 048
     Dates: start: 20111012
  3. EXJADE [Suspect]
     Dosage: (3 DF, QD ) 750mg daily
     Route: 048
     Dates: start: 201110
  4. OXYCODONE [Concomitant]
     Indication: PAIN
     Dosage: 1 DF, BID
     Dates: start: 20120103

REACTIONS (5)
  - Death [Fatal]
  - Pulmonary oedema [Unknown]
  - Sickle cell anaemia with crisis [Unknown]
  - Nasopharyngitis [Recovered/Resolved]
  - Dyspnoea [Recovered/Resolved]
